FAERS Safety Report 10341574 (Version 1)
Quarter: 2014Q3

REPORT INFORMATION
  Report Type: Report from Study
  Country: US (occurrence: US)
  Receive Date: 20140725
  Receipt Date: 20140725
  Transmission Date: 20150326
  Serious: Yes (Other)
  Sender: FDA-Public Use
  Company Number: US-ROCHE-1437581

PATIENT
  Age: 13 Year
  Sex: Male
  Weight: 65.14 kg

DRUGS (4)
  1. CORTEF [Concomitant]
     Active Substance: HYDROCORTISONE
     Indication: ADRENAL INSUFFICIENCY
     Dosage: 10 MG IN MORNING, 5 MG, AFTERNOON, AND 5 MG EVENIN
     Route: 065
  2. CORTEF [Concomitant]
     Active Substance: HYDROCORTISONE
     Dosage: STRESS DOSING
     Route: 065
  3. NUTROPIN AQ [Suspect]
     Active Substance: SOMATROPIN
     Indication: GROWTH HORMONE DEFICIENCY
     Route: 058
  4. NUTROPIN AQ [Suspect]
     Active Substance: SOMATROPIN
     Indication: BLOOD CORTISOL DECREASED

REACTIONS (2)
  - Insulin-like growth factor increased [Unknown]
  - Growth retardation [Unknown]

NARRATIVE: CASE EVENT DATE: 201308
